FAERS Safety Report 5246064-7 (Version None)
Quarter: 2007Q1

REPORT INFORMATION
  Report Type: 
  Country: None (occurrence: None)
  Receive Date: 20061201
  Receipt Date: 20060808
  Transmission Date: 20070707
  Serious: No
  Sender: FDA-Public Use
  Company Number: 2006PV019102

PATIENT
  Age: 63 Year
  Sex: Female
  Weight: 66.6788 kg

DRUGS (3)
  1. BYETTA [Suspect]
     Indication: DIABETES MELLITUS NON-INSULIN-DEPENDENT
     Dosage: 10 MCG;BID;SC, 5 MCG;BID;SC
     Route: 058
     Dates: start: 20060610, end: 20060710
  2. BYETTA [Suspect]
     Indication: DIABETES MELLITUS NON-INSULIN-DEPENDENT
     Dosage: 10 MCG;BID;SC, 5 MCG;BID;SC
     Route: 058
     Dates: start: 20060710, end: 20060717
  3. METFORMIN HCL [Concomitant]

REACTIONS (6)
  - CHILLS [None]
  - FALL [None]
  - HYPERSENSITIVITY [None]
  - RHINORRHOEA [None]
  - SNEEZING [None]
  - VOMITING [None]
